FAERS Safety Report 8130776-1 (Version None)
Quarter: 2012Q1

REPORT INFORMATION
  Report Type: 
  Country: None (occurrence: None)
  Receive Date: 20120213
  Receipt Date: 20120203
  Transmission Date: 20120608
  Serious: No
  Sender: FDA-Public Use
  Company Number: US-BIOGENIDEC-2012BI004490

PATIENT
  Age: 38 Year
  Sex: Female

DRUGS (2)
  1. TYSABRI [Suspect]
     Indication: MULTIPLE SCLEROSIS
     Route: 042
     Dates: start: 20070626, end: 20080612
  2. TYSABRI [Suspect]
     Route: 042
     Dates: start: 20110204

REACTIONS (3)
  - ORAL MUCOSAL ERYTHEMA [None]
  - ORAL PAIN [None]
  - OROPHARYNGEAL PAIN [None]
